FAERS Safety Report 4407806-3 (Version None)
Quarter: 2004Q3

REPORT INFORMATION
  Report Type: 
  Country: None (occurrence: None)
  Receive Date: 20040721
  Receipt Date: 20040709
  Transmission Date: 20050211
  Serious: Yes (Death, Hospitalization)
  Sender: FDA-Public Use
  Company Number: 207762

PATIENT
  Age: 73 Year
  Sex: Male
  Weight: 69.8 kg

DRUGS (6)
  1. AVASTIN [Suspect]
     Indication: COLON CANCER
     Dosage: 10 MG/KG Q2W, INTRAVENOUS
     Route: 042
     Dates: start: 20040308, end: 20040614
  2. FLUOROURACIL [Concomitant]
  3. LEUCOVORIN (LEUCOVORIN CALCIUIM) [Concomitant]
  4. OXALIPLATIN (OXALIPLATIN) [Concomitant]
  5. ANZEMET [Concomitant]
  6. DECADRON [Concomitant]

REACTIONS (3)
  - EPISTAXIS [None]
  - RESPIRATORY DISTRESS [None]
  - RESPIRATORY FAILURE [None]
